FAERS Safety Report 9703687 (Version 1)
Quarter: 2013Q4

REPORT INFORMATION
  Report Type: Spontaneous
  Country: US (occurrence: US)
  Receive Date: 20131122
  Receipt Date: 20131122
  Transmission Date: 20140711
  Serious: No
  Sender: FDA-Public Use
  Company Number: US-PFIZER INC-2013333157

PATIENT
  Age: 53 Year
  Sex: Female

DRUGS (10)
  1. XELJANZ [Suspect]
     Indication: RHEUMATOID ARTHRITIS
     Dosage: 5 MG, 2X/DAY
     Route: 048
     Dates: start: 201310
  2. METHOTREXATE [Concomitant]
     Dosage: UNK
  3. FOLIC ACID [Concomitant]
     Dosage: UNK
  4. VITAMIN D [Concomitant]
     Dosage: UNK
  5. LORTAB [Concomitant]
     Dosage: UNK
  6. PHENERGAN [Concomitant]
     Dosage: UNK
  7. IMITREX [Concomitant]
     Dosage: UNK
  8. XYREM [Concomitant]
     Dosage: UNK
  9. XARELTO [Concomitant]
     Dosage: UNK
  10. HORIZANT [Concomitant]
     Dosage: UNK

REACTIONS (1)
  - Sinusitis [Unknown]
